FAERS Safety Report 8979693 (Version 2)
Quarter: 2013Q1

REPORT INFORMATION
  Report Type: Report from Study
  Country: US (occurrence: US)
  Receive Date: 20121221
  Receipt Date: 20130306
  Transmission Date: 20140127
  Serious: Yes (Hospitalization)
  Sender: FDA-Public Use
  Company Number: US-US-EMD SERONO, INC.-7182624

PATIENT
  Sex: Female

DRUGS (4)
  1. REBIF [Suspect]
     Indication: MULTIPLE SCLEROSIS
     Route: 058
     Dates: start: 20111114, end: 201211
  2. REBIF [Suspect]
     Route: 058
     Dates: start: 201211
  3. MOTRIN [Concomitant]
     Indication: PREMEDICATION
  4. ADVIL [Concomitant]
     Indication: PREMEDICATION

REACTIONS (7)
  - Pneumonia [Recovering/Resolving]
  - Pharyngitis streptococcal [Recovering/Resolving]
  - Sinusitis [Recovering/Resolving]
  - Bronchitis [Recovering/Resolving]
  - Injection site erythema [Unknown]
  - Injection site swelling [Unknown]
  - Influenza like illness [Recovering/Resolving]
